FAERS Safety Report 25936709 (Version 1)
Quarter: 2025Q4

REPORT INFORMATION
  Report Type: Spontaneous
  Country: US (occurrence: US)
  Receive Date: 20251017
  Receipt Date: 20251017
  Transmission Date: 20260118
  Serious: No
  Sender: TEVA
  Company Number: US-TEVA-VS-3381944

PATIENT
  Age: 45 Year
  Sex: Female
  Weight: 63.503 kg

DRUGS (1)
  1. AJOVY [Suspect]
     Active Substance: FREMANEZUMAB-VFRM
     Indication: Migraine prophylaxis
     Dosage: 225/1.5MG/ML?3 CONSECUTIVE INJECTIONS FOR A QUARTERLY DOSE?FROM AROUND 4 YEARS AGO
     Route: 065

REACTIONS (3)
  - Injection site swelling [Unknown]
  - Wrong technique in product usage process [Unknown]
  - Device leakage [Unknown]

NARRATIVE: CASE EVENT DATE: 20251013
